FAERS Safety Report 9166088 (Version 3)
Quarter: 2013Q2

REPORT INFORMATION
  Report Type: Spontaneous
  Country: AU (occurrence: AU)
  Receive Date: 20130315
  Receipt Date: 20130506
  Transmission Date: 20140414
  Serious: No
  Sender: FDA-Public Use
  Company Number: AU-ASTRAZENECA-2013SE15993

PATIENT
  Age: 390 Month
  Sex: Female

DRUGS (6)
  1. SEROQUEL IR [Suspect]
     Indication: INSOMNIA
     Dosage: 50-75 MG AT NIGHT
     Route: 048
     Dates: start: 2010
  2. SEROQUEL IR [Suspect]
     Indication: AFFECTIVE DISORDER
     Dosage: 50-75 MG AT NIGHT
     Route: 048
     Dates: start: 2010
  3. ANTIDEPRESSANT [Concomitant]
  4. ZOLOFT [Concomitant]
     Indication: DEPRESSION
     Route: 048
  5. STILNOX [Concomitant]
     Indication: INSOMNIA
     Route: 048
  6. ADALAT [Concomitant]
     Indication: GASTROINTESTINAL PAIN

REACTIONS (3)
  - Vomiting in pregnancy [Unknown]
  - Exposure during pregnancy [Unknown]
  - Off label use [Unknown]
